FAERS Safety Report 23912332 (Version 1)
Quarter: 2024Q2

REPORT INFORMATION
  Report Type: Spontaneous
  Country: US (occurrence: US)
  Receive Date: 20240528
  Receipt Date: 20240528
  Transmission Date: 20240716
  Serious: No
  Sender: FDA-Public Use
  Company Number: US-Dermavant-001147

PATIENT
  Sex: Male

DRUGS (2)
  1. TAPINAROF [Suspect]
     Active Substance: TAPINAROF
     Indication: Psoriasis
     Dates: start: 2023, end: 202312
  2. OLMESARTAN [Concomitant]
     Active Substance: OLMESARTAN
     Indication: Blood pressure increased

REACTIONS (5)
  - Ingrown hair [Unknown]
  - Application site folliculitis [Unknown]
  - Application site papules [Unknown]
  - Application site erythema [Unknown]
  - Acne [Unknown]
